FAERS Safety Report 21472249 (Version 1)
Quarter: 2022Q4

REPORT INFORMATION
  Report Type: Spontaneous
  Country: US (occurrence: US)
  Receive Date: 20221018
  Receipt Date: 20221018
  Transmission Date: 20230113
  Serious: Yes (Life-Threatening, Hospitalization)
  Sender: FDA-Public Use
  Company Number: US-PFIZER INC-PV202200078658

PATIENT
  Age: 39 Year
  Sex: Male

DRUGS (10)
  1. METOCLOPRAMIDE HYDROCHLORIDE [Suspect]
     Active Substance: METOCLOPRAMIDE HYDROCHLORIDE
     Indication: Ileus
     Dosage: UNK, AS NEEDED
  2. ERYTHROMYCIN [Suspect]
     Active Substance: ERYTHROMYCIN
     Indication: Ileus
     Dosage: 400 MG, DAILY
  3. ERYTHROMYCIN [Suspect]
     Active Substance: ERYTHROMYCIN
     Dosage: 400 MG, 3X/DAY
  4. POLYETHYLENE GLYCOL, UNSPECIFIED [Suspect]
     Active Substance: POLYETHYLENE GLYCOL, UNSPECIFIED
     Indication: Ileus
     Dosage: 17 G, 2X/DAY; ALL WITH MINIMAL STOOL OUTPUT FOR THE INITIAL 2 WEEKS OF HOSPITAL ADMISSION
  5. SENNOSIDES [Suspect]
     Active Substance: SENNOSIDES
     Indication: Ileus
     Dosage: 8.5 MG, 2X/DAY; ALL WITH MINIMAL STOOL OUTPUT FOR THE INITIAL 2 WEEKS OF HOSPITAL ADMISSION
  6. BISACODYL [Suspect]
     Active Substance: BISACODYL
     Indication: Ileus
     Dosage: 10 MG, AS NEEDED; ALL WITH MINIMAL STOOL OUTPUT FOR THE INITIAL 2 WEEKS OF HOSPITAL ADMISSION
  7. NEOSTIGMINE [Suspect]
     Active Substance: NEOSTIGMINE
     Indication: Ileus
     Dosage: 2 MG; INJECTION OVER 30 MINUTES 3 TIMES
     Route: 058
  8. LINACLOTIDE [Suspect]
     Active Substance: LINACLOTIDE
     Indication: Ileus
     Dosage: 145 MG, DAILY
  9. PRUCALOPRIDE [Suspect]
     Active Substance: PRUCALOPRIDE
     Indication: Ileus
     Dosage: 2 MG, DAILY
  10. FLEET ENEMA [Suspect]
     Active Substance: SODIUM PHOSPHATE, DIBASIC\SODIUM PHOSPHATE, MONOBASIC
     Indication: Ileus
     Dosage: UNK, AS NEEDED; ALL WITH MINIMAL STOOL OUTPUT FOR THE INITIAL 2 WEEKS OF HOSPITAL ADMISSION

REACTIONS (2)
  - Off label use [Unknown]
  - Drug ineffective for unapproved indication [Unknown]
